FAERS Safety Report 6821113-0 (Version None)
Quarter: 2010Q3

REPORT INFORMATION
  Report Type: 
  Country: None (occurrence: None)
  Receive Date: 20100707
  Receipt Date: 20080229
  Transmission Date: 20110219
  Serious: No
  Sender: FDA-Public Use
  Company Number: US-PFIZER INC-2008019677

PATIENT
  Sex: Male

DRUGS (4)
  1. ZOLOFT [Suspect]
  2. WARFARIN SODIUM [Concomitant]
  3. PROPAFENONE HCL [Concomitant]
  4. ALL OTHER THERAPEUTIC PRODUCTS [Concomitant]

REACTIONS (1)
  - ALOPECIA [None]
